FAERS Safety Report 19952440 (Version 1)
Quarter: 2021Q4

REPORT INFORMATION
  Report Type: Spontaneous
  Country: US (occurrence: US)
  Receive Date: 20211013
  Receipt Date: 20211013
  Transmission Date: 20220303
  Serious: No
  Sender: FDA-Public Use
  Company Number: US-BAYER-2021A226891

PATIENT
  Sex: Male

DRUGS (3)
  1. MIRALAX [Suspect]
     Active Substance: POLYETHYLENE GLYCOL 3350
     Indication: Gastrointestinal disorder
  2. BENEFIBER FIBER SUPPLEMENT [Concomitant]
     Indication: Gastrointestinal disorder
  3. DOFETILIDE [Concomitant]
     Active Substance: DOFETILIDE

REACTIONS (1)
  - Diarrhoea [Unknown]
